FAERS Safety Report 9797105 (Version 2)
Quarter: 2014Q1

REPORT INFORMATION
  Report Type: Report from Study
  Country: US (occurrence: US)
  Receive Date: 20140106
  Receipt Date: 20140115
  Transmission Date: 20141002
  Serious: Yes (Death)
  Sender: FDA-Public Use
  Company Number: PHEH2013US026560

PATIENT
  Sex: Male
  Weight: 41 kg

DRUGS (1)
  1. TOBI [Suspect]
     Indication: CYSTIC FIBROSIS
     Dosage: 300 MG, BID
     Route: 055

REACTIONS (4)
  - Cystic fibrosis [Fatal]
  - Disease complication [Fatal]
  - Respiratory failure [Fatal]
  - Bacteraemia [Fatal]
